FAERS Safety Report 7768939-7 (Version None)
Quarter: 2011Q3

REPORT INFORMATION
  Report Type: 
  Country: None (occurrence: None)
  Receive Date: 20110922
  Receipt Date: 20101123
  Transmission Date: 20111222
  Serious: No
  Sender: FDA-Public Use
  Company Number: US-ASTRAZENECA-2010SE07191

PATIENT
  Age: 53 Year
  Sex: Male
  Weight: 86.2 kg

DRUGS (6)
  1. SEROQUEL [Suspect]
     Indication: BIPOLAR DISORDER
     Dosage: FOUR 400MG TABLET AT EACH NIGHT, TOTAL 1600MG
     Route: 048
  2. SEROQUEL [Suspect]
     Route: 048
  3. SEROQUEL [Suspect]
     Dosage: FOUR 200MG TABLETS, TOTAL 800MG
     Route: 048
  4. SEROQUEL [Suspect]
     Dosage: TWO 400MG TABLET AT EACH NIGHT, TOTAL 800MG
     Route: 048
  5. TEGRETOL [Concomitant]
  6. KLONOPIN [Concomitant]

REACTIONS (6)
  - INCORRECT DOSE ADMINISTERED [None]
  - INSOMNIA [None]
  - DEREALISATION [None]
  - DRUG DOSE OMISSION [None]
  - ANXIETY [None]
  - AGITATION [None]
